FAERS Safety Report 6507562-9 (Version None)
Quarter: 2009Q4

REPORT INFORMATION
  Report Type: 
  Country: None (occurrence: None)
  Receive Date: 20091221
  Receipt Date: 20091214
  Transmission Date: 20100525
  Serious: Yes (Hospitalization, Other)
  Sender: FDA-Public Use
  Company Number: FR-BRISTOL-MYERS SQUIBB COMPANY-14895114

PATIENT
  Age: 78 Year
  Sex: Female

DRUGS (9)
  1. COUMADIN [Suspect]
     Indication: DEEP VEIN THROMBOSIS
     Route: 048
     Dates: start: 20090219, end: 20090224
  2. CALCIPARINE [Suspect]
     Indication: DEEP VEIN THROMBOSIS
     Dosage: 1DOSAGEFORM=20 000 IU/0.8 ML
     Route: 058
     Dates: start: 20090217, end: 20090224
  3. PIPERACILLIN AND TAZOBACTAM [Concomitant]
     Indication: ANTIBIOTIC THERAPY
     Dosage: 1DOSAGEFORM=4 G/500 MG
     Route: 042
     Dates: start: 20090222, end: 20090224
  4. AMIKACIN [Concomitant]
     Indication: ANTIBIOTIC THERAPY
     Route: 042
     Dates: start: 20090222, end: 20090224
  5. VANCOMYCIN [Concomitant]
     Indication: ANTIBIOTIC THERAPY
     Route: 042
     Dates: start: 20090222, end: 20090224
  6. TRIATEC [Concomitant]
     Indication: HYPERTENSION
     Route: 048
  7. CARDENSIEL [Concomitant]
     Indication: CARDIAC FAILURE
     Route: 048
  8. LASILIX FAIBLE [Concomitant]
     Indication: HYPERTENSION
     Route: 048
     Dates: start: 20090212, end: 20090218
  9. EQUANIL [Concomitant]
     Indication: ANXIETY
     Dosage: HALF INTAKE;17FEB09TO BET 22FEB09 AND 03MAR09
     Route: 048
     Dates: start: 20090217, end: 20090101

REACTIONS (9)
  - CYTOLYTIC HEPATITIS [None]
  - GASTROINTESTINAL ULCER HAEMORRHAGE [None]
  - HELICOBACTER TEST POSITIVE [None]
  - INTERNATIONAL NORMALISED RATIO INCREASED [None]
  - MELAENA [None]
  - OVERDOSE [None]
  - RECTAL HAEMORRHAGE [None]
  - RESPIRATORY DISTRESS [None]
  - SHOCK HAEMORRHAGIC [None]
